FAERS Safety Report 25825386 (Version 1)
Quarter: 2025Q3

REPORT INFORMATION
  Report Type: Spontaneous
  Country: US (occurrence: None)
  Receive Date: 20250919
  Receipt Date: 20250919
  Transmission Date: 20251020
  Serious: No
  Sender: FDA-CTU
  Company Number: None

PATIENT
  Age: 72 Year
  Sex: Male

DRUGS (1)
  1. NEMLUVIO [Suspect]
     Active Substance: NEMOLIZUMAB-ILTO
     Indication: Neurodermatitis

REACTIONS (4)
  - Urticaria [None]
  - Blister [None]
  - Injection site discolouration [None]
  - Therapy cessation [None]

NARRATIVE: CASE EVENT DATE: 20250905
